FAERS Safety Report 5468499-X (Version None)
Quarter: 2007Q3

REPORT INFORMATION
  Report Type: 
  Country: None (occurrence: None)
  Receive Date: 20070926
  Receipt Date: 20070718
  Transmission Date: 20080115
  Serious: No
  Sender: FDA-Public Use
  Company Number: US-BRISTOL-MYERS SQUIBB COMPANY-13850086

PATIENT
  Age: 58 Year
  Sex: Male
  Weight: 93 kg

DRUGS (10)
  1. ORENCIA [Suspect]
     Dates: start: 20070716
  2. ACYCLOVIR [Concomitant]
  3. CLARINEX [Concomitant]
  4. VIAGRA [Concomitant]
  5. METHOTREXATE [Concomitant]
  6. FOLIC ACID [Concomitant]
  7. GLUCOSAMINE [Concomitant]
  8. XANAX [Concomitant]
  9. PREDNISONE [Concomitant]
  10. HYDROCODONE BITARTRATE [Concomitant]

REACTIONS (1)
  - RASH PAPULAR [None]
